FAERS Safety Report 8771692 (Version 1)
Quarter: 2012Q4

REPORT INFORMATION
  Report Type: 
  Country: IT (occurrence: IT)
  Receive Date: 20120905
  Receipt Date: 20120905
  Transmission Date: 20130627
  Serious: Yes (Hospitalization)
  Sender: FDA-Public Use
  Company Number: IT-ROCHE-1112048

PATIENT
  Age: 66 Year
  Sex: Female

DRUGS (9)
  1. ROACTEMRA [Suspect]
     Indication: RHEUMATOID ARTHRITIS
     Route: 042
     Dates: start: 20110801, end: 20120612
  2. DELTACORTENE [Concomitant]
     Route: 065
  3. CRESTOR [Concomitant]
     Route: 065
  4. LIMPIDEX [Concomitant]
     Route: 065
  5. PROCAPTAN [Concomitant]
     Route: 065
  6. CONGESCOR [Concomitant]
  7. DIAMICRON [Concomitant]
     Route: 065
  8. SEREUPIN [Concomitant]
  9. TAVOR (ITALY) [Concomitant]
     Route: 065

REACTIONS (1)
  - Basal cell carcinoma [Recovered/Resolved]
